FAERS Safety Report 4278576-7 (Version None)
Quarter: 2004Q1

REPORT INFORMATION
  Report Type: 
  Country: None (occurrence: None)
  Receive Date: 20040122
  Receipt Date: 20040115
  Transmission Date: 20041129
  Serious: Yes (Other)
  Sender: FDA-Public Use
  Company Number: K200400057

PATIENT
  Age: 33 Year
  Sex: Female
  Weight: 89.8 kg

DRUGS (1)
  1. LEVOXYL [Suspect]
     Indication: HYPOTHYROIDISM
     Dosage: 175 MCG QHS, ORAL
     Route: 048
     Dates: start: 19970101, end: 20040114

REACTIONS (5)
  - DYSGEUSIA [None]
  - DYSPHAGIA [None]
  - ORAL DISCOMFORT [None]
  - SENSATION OF FOREIGN BODY [None]
  - THROAT IRRITATION [None]
